FAERS Safety Report 9222684 (Version 3)
Quarter: 2020Q2

REPORT INFORMATION
  Report Type: Spontaneous
  Country: US (occurrence: US)
  Receive Date: 20130410
  Receipt Date: 20200507
  Transmission Date: 20200714
  Serious: Yes (Other)
  Sender: FDA-Public Use
  Company Number: US-PFIZER INC-2013108826

PATIENT
  Age: 60 Year
  Sex: Female
  Weight: 99.77 kg

DRUGS (2)
  1. PHENOBARBITONE [Concomitant]
     Active Substance: PHENOBARBITAL
     Indication: EPILEPSY
     Dosage: 64.8 MG (2 ORAL TABLETS OF 32.4MG), TWO TIMES A DAY
     Route: 048
  2. CELONTIN [Suspect]
     Active Substance: METHSUXIMIDE
     Indication: EPILEPSY
     Dosage: 300 MG, 2X/DAY
     Route: 048

REACTIONS (1)
  - Arthropathy [Unknown]
